FAERS Safety Report 5397049-1 (Version None)
Quarter: 2007Q3

REPORT INFORMATION
  Report Type: 
  Country: None (occurrence: None)
  Receive Date: 20070723
  Receipt Date: 20070709
  Transmission Date: 20080115
  Serious: Yes (Hospitalization)
  Sender: FDA-Public Use
  Company Number: 230193M07USA

PATIENT
  Age: 64 Year
  Sex: Male
  Weight: 74.3899 kg

DRUGS (15)
  1. REBIF [Suspect]
     Indication: MULTIPLE SCLEROSIS
     Dosage: 44 MCG, 3 IN 1 WEEKS, SUBCUTANEOUS
     Route: 058
     Dates: start: 20070504
  2. LASIX [Concomitant]
  3. ALDACTONE [Concomitant]
  4. ASPIRIN [Concomitant]
  5. COREG [Concomitant]
  6. ALLOPURINOL [Concomitant]
  7. LEVOTHYROXINE SODIUM [Concomitant]
  8. PLAVIX [Concomitant]
  9. LIPITOR [Concomitant]
  10. CAPTOPRIL [Concomitant]
  11. XANAX [Concomitant]
  12. NITROGLYCERIN [Concomitant]
  13. NITROGLYCERIN [Concomitant]
  14. ZANAFLEX [Concomitant]
  15. MULTIVITAMIN (MULTIVITAMIN) [Concomitant]

REACTIONS (2)
  - CHEST PAIN [None]
  - LARGE INTESTINE PERFORATION [None]
